FAERS Safety Report 11529812 (Version 4)
Quarter: 2015Q4

REPORT INFORMATION
  Report Type: Spontaneous
  Country: CN (occurrence: CN)
  Receive Date: 20150921
  Receipt Date: 20151105
  Transmission Date: 20160304
  Serious: Yes (Other)
  Sender: FDA-Public Use
  Company Number: CN-GLAXOSMITHKLINE-CN2015GSK132159

PATIENT
  Age: 26 Year
  Sex: Female

DRUGS (2)
  1. CARBAMAZEPINE. [Suspect]
     Active Substance: CARBAMAZEPINE
     Indication: TONIC CONVULSION
     Dosage: UNK
     Route: 048
     Dates: end: 2012
  2. LAMICTAL [Suspect]
     Active Substance: LAMOTRIGINE
     Indication: EPILEPSY
     Dosage: 75 MG, QD
     Route: 048
     Dates: start: 2012

REACTIONS (5)
  - Drug dose omission [Unknown]
  - Exposure during pregnancy [Unknown]
  - Epilepsy [Recovered/Resolved]
  - Foetal death [Unknown]
  - Medication error [Unknown]

NARRATIVE: CASE EVENT DATE: 201508
